FAERS Safety Report 4504541-8 (Version None)
Quarter: 2004Q4

REPORT INFORMATION
  Report Type: 
  Country: None (occurrence: None)
  Receive Date: 20041116
  Receipt Date: 20031007
  Transmission Date: 20050328
  Serious: Yes (Hospitalization)
  Sender: FDA-Public Use
  Company Number: A01200304687

PATIENT
  Age: 53 Year
  Sex: Male

DRUGS (5)
  1. ELOXATIN [Suspect]
     Indication: COLORECTAL CANCER METASTATIC
     Dosage: 45 MG/M2 1/WEEK INTRAVENOUS NOS
     Route: 042
     Dates: start: 20030711, end: 20030711
  2. ELOXATIN [Suspect]
     Indication: METASTASES TO LIVER
     Dosage: 45 MG/M2 1/WEEK INTRAVENOUS NOS
     Route: 042
     Dates: start: 20030711, end: 20030711
  3. IRINOTECAN [Concomitant]
  4. FLUOROURACIL [Concomitant]
  5. CALCIUM FOLINATE [Concomitant]

REACTIONS (5)
  - ALBUMIN CSF INCREASED [None]
  - DYSPHAGIA [None]
  - FACIAL PARESIS [None]
  - GUILLAIN-BARRE SYNDROME [None]
  - HYPOAESTHESIA [None]
